FAERS Safety Report 14783880 (Version 2)
Quarter: 2018Q3

REPORT INFORMATION
  Report Type: Spontaneous
  Country: DE (occurrence: DE)
  Receive Date: 20180420
  Receipt Date: 20180705
  Transmission Date: 20181010
  Serious: Yes (Hospitalization, Other)
  Sender: FDA-Public Use
  Company Number: DE-JNJFOC-20180423962

PATIENT
  Age: 16 Year
  Sex: Female
  Weight: 86 kg

DRUGS (2)
  1. XARELTO [Suspect]
     Active Substance: RIVAROXABAN
     Indication: VENOUS THROMBOSIS LIMB
     Route: 048
     Dates: start: 201803, end: 20180404
  2. XARELTO [Suspect]
     Active Substance: RIVAROXABAN
     Indication: VENOUS THROMBOSIS LIMB
     Route: 048
     Dates: start: 201803, end: 20180404

REACTIONS (6)
  - Disseminated intravascular coagulation [Unknown]
  - Eye haematoma [Unknown]
  - Headache [Unknown]
  - Drug administered to patient of inappropriate age [Unknown]
  - Conjunctival haemorrhage [Unknown]
  - Breast necrosis [Unknown]

NARRATIVE: CASE EVENT DATE: 20180404
